FAERS Safety Report 4491175-7 (Version None)
Quarter: 2004Q3

REPORT INFORMATION
  Report Type: 
  Country: None (occurrence: None)
  Receive Date: 20040927
  Receipt Date: 20040802
  Transmission Date: 20050211
  Serious: No
  Sender: FDA-Public Use
  Company Number: USA040874407

PATIENT
  Age: 48 Year
  Sex: Male

DRUGS (1)
  1. STRATTERA [Suspect]
     Dosage: 80 MG DAY
     Dates: start: 20040701

REACTIONS (3)
  - EJACULATION DELAYED [None]
  - POLLAKIURIA [None]
  - URINE FLOW DECREASED [None]
